FAERS Safety Report 11900660 (Version 1)
Quarter: 2016Q1

REPORT INFORMATION
  Report Type: Spontaneous
  Country: US (occurrence: US)
  Receive Date: 20160108
  Receipt Date: 20160108
  Transmission Date: 20160526
  Serious: Yes (Other)
  Sender: FDA-Public Use
  Company Number: US-BAXALTA-2015BLT003695

PATIENT
  Age: 41 Year
  Sex: Male

DRUGS (1)
  1. RECOMBINATE [Suspect]
     Active Substance: ANTIHEMOPHILIC FACTOR, HUMAN RECOMBINANT
     Indication: PROPHYLAXIS
     Dosage: 2040 IU, 1X A WEEK
     Route: 042

REACTIONS (3)
  - Arthralgia [Recovering/Resolving]
  - Injury [Recovered/Resolved]
  - Haemorrhage [Recovered/Resolved]
